FAERS Safety Report 20811044 (Version 1)
Quarter: 2022Q2

REPORT INFORMATION
  Report Type: Spontaneous
  Country: FR (occurrence: FR)
  Receive Date: 20220510
  Receipt Date: 20220510
  Transmission Date: 20220721
  Serious: Yes (Life-Threatening)
  Sender: FDA-Public Use
  Company Number: FR-NOVARTISPH-NVSC2022FR107519

PATIENT
  Age: 73 Year
  Sex: Male

DRUGS (11)
  1. PREDNISOLONE [Suspect]
     Active Substance: PREDNISOLONE
     Indication: Malignant histiocytosis
     Dosage: UNK
     Route: 065
  2. CYCLOPHOSPHAMIDE [Suspect]
     Active Substance: CYCLOPHOSPHAMIDE
     Indication: Malignant histiocytosis
     Dosage: UNK
     Route: 065
  3. CLADRIBINE [Suspect]
     Active Substance: CLADRIBINE
     Indication: Malignant histiocytosis
     Dosage: UNK
     Route: 065
  4. BENDAMUSTINE [Suspect]
     Active Substance: BENDAMUSTINE
     Indication: Malignant histiocytosis
     Dosage: UNK
     Route: 065
  5. VINCRISTINE [Suspect]
     Active Substance: VINCRISTINE
     Indication: Malignant histiocytosis
     Route: 065
  6. ETOPOSIDE [Suspect]
     Active Substance: ETOPOSIDE
     Indication: Malignant histiocytosis
     Route: 065
  7. DOXORUBICIN [Suspect]
     Active Substance: DOXORUBICIN
     Indication: Malignant histiocytosis
     Dosage: UNK
     Route: 065
  8. DEXAMETHASONE [Suspect]
     Active Substance: DEXAMETHASONE
     Indication: Malignant histiocytosis
     Dosage: UNK
     Route: 065
  9. VEMURAFENIB [Suspect]
     Active Substance: VEMURAFENIB
     Indication: Malignant histiocytosis
     Dosage: UNK
     Route: 065
  10. LENALIDOMIDE [Suspect]
     Active Substance: LENALIDOMIDE
     Indication: Malignant histiocytosis
     Dosage: UNK
     Route: 065
  11. VELCADE [Suspect]
     Active Substance: BORTEZOMIB
     Indication: Malignant histiocytosis
     Dosage: UNK
     Route: 065

REACTIONS (3)
  - Therapy non-responder [Unknown]
  - Off label use [Unknown]
  - Product use in unapproved indication [Unknown]
